FAERS Safety Report 12076396 (Version 1)
Quarter: 2016Q1

REPORT INFORMATION
  Report Type: Other
  Country: US (occurrence: US)
  Receive Date: 20160215
  Receipt Date: 20160215
  Transmission Date: 20160526
  Serious: Yes (Other)
  Sender: FDA-Public Use
  Company Number: US-AJANTA PHARMA USA INC.-1047787

PATIENT
  Age: 12 Year
  Sex: Female
  Weight: 54 kg

DRUGS (6)
  1. TOPIRAMATE. [Concomitant]
     Active Substance: TOPIRAMATE
  2. REMIFENTANIL [Concomitant]
     Active Substance: REMIFENTANIL
     Route: 041
  3. MIDAZOLAM [Concomitant]
     Active Substance: MIDAZOLAM\MIDAZOLAM HYDROCHLORIDE
     Route: 048
  4. CLORAZEPATE DIPOTASSIUM. [Concomitant]
     Active Substance: CLORAZEPATE DIPOTASSIUM
  5. LEVETIRACETAM. [Suspect]
     Active Substance: LEVETIRACETAM
     Indication: SEIZURE
     Route: 041
  6. PROPOFOL. [Concomitant]
     Active Substance: PROPOFOL
     Route: 041

REACTIONS (1)
  - Electroencephalogram abnormal [Recovered/Resolved]
